FAERS Safety Report 6183687-5 (Version None)
Quarter: 2009Q2

REPORT INFORMATION
  Report Type: 
  Country: None (occurrence: None)
  Receive Date: 20090508
  Receipt Date: 20090427
  Transmission Date: 20091009
  Serious: Yes (Other)
  Sender: FDA-Public Use
  Company Number: JP-PFIZER INC-2009206853

PATIENT
  Age: 75 Year

DRUGS (2)
  1. SUNITINIB MALATE [Suspect]
     Indication: RENAL CELL CARCINOMA
     Dosage: 37.5 MG, 1X/DAY
     Route: 048
     Dates: start: 20090327
  2. THYRADIN-S [Concomitant]
     Dosage: UNK
     Route: 048
     Dates: start: 20090410

REACTIONS (1)
  - ORAL DISCHARGE [None]
